FAERS Safety Report 20171264 (Version 1)
Quarter: 2021Q4

REPORT INFORMATION
  Report Type: Spontaneous
  Country: CN (occurrence: CN)
  Receive Date: 20211210
  Receipt Date: 20211210
  Transmission Date: 20220303
  Serious: Yes (Hospitalization, Other)
  Sender: FDA-Public Use
  Company Number: CN-NAPPMUNDI-GBR-2021-0093226

PATIENT
  Age: 60 Year
  Sex: Male

DRUGS (6)
  1. OXYCONTIN [Suspect]
     Active Substance: OXYCODONE HYDROCHLORIDE
     Indication: Analgesic therapy
     Dosage: 300 MG, Q12H
     Route: 048
     Dates: start: 20210519, end: 20210524
  2. ZOLEDRONIC ACID [Suspect]
     Active Substance: ZOLEDRONIC ACID
     Indication: Neoplasm malignant
     Dosage: 4 MG, DAILY
     Route: 041
     Dates: start: 20210518, end: 20210518
  3. AVASTIN [Suspect]
     Active Substance: BEVACIZUMAB
     Indication: Targeted cancer therapy
     Dosage: 400 MG, DAILY
     Route: 041
     Dates: start: 20210519, end: 20210519
  4. MEDROXYPROGESTERONE ACETATE [Suspect]
     Active Substance: MEDROXYPROGESTERONE ACETATE
     Indication: Hormone therapy
     Dosage: 0.5 G, DAILY
     Route: 048
     Dates: start: 20210522, end: 20210524
  5. SHARK LIVER OIL [Suspect]
     Active Substance: SHARK LIVER OIL
     Indication: Granulocytopenia
     Dosage: 50 MG, TID
     Route: 048
     Dates: start: 20210514, end: 20210524
  6. TISLELIZUMAB [Concomitant]
     Active Substance: TISLELIZUMAB
     Indication: Immunochemotherapy
     Dosage: 200 MG, DAILY
     Route: 041
     Dates: start: 20210519, end: 20210519

REACTIONS (1)
  - Myelosuppression [Recovering/Resolving]

NARRATIVE: CASE EVENT DATE: 20210612
